FAERS Safety Report 6611141-2 (Version None)
Quarter: 2010Q1

REPORT INFORMATION
  Report Type: 
  Country: None (occurrence: None)
  Receive Date: 20100302
  Receipt Date: 20100302
  Transmission Date: 20100710
  Serious: Yes (Hospitalization)
  Sender: FDA-Public Use
  Company Number: None

PATIENT
  Age: 65 Year
  Sex: Male
  Weight: 89.8 kg

DRUGS (14)
  1. MORPHINE [Suspect]
     Indication: EYE PAIN
     Dosage: 5 MG TWICE IV RECENT
     Route: 042
  2. LANTUS [Concomitant]
  3. ASPIRIN [Concomitant]
  4. ENALAPIL [Concomitant]
  5. NABICARB [Concomitant]
  6. METOPROLOL [Concomitant]
  7. DIGOXIN [Concomitant]
  8. KLOR-CON [Concomitant]
  9. SPIRONOLACTONE [Concomitant]
  10. GLIPIZIDE [Concomitant]
  11. LASIX [Concomitant]
  12. WARFARIN SODIUM [Concomitant]
  13. ALBUTEROL [Concomitant]
  14. MEXILETINE [Concomitant]

REACTIONS (2)
  - HYPOXIA [None]
  - RESPIRATORY DISORDER [None]
